FAERS Safety Report 19753426 (Version 2)
Quarter: 2021Q3

REPORT INFORMATION
  Report Type: Spontaneous
  Country: US (occurrence: US)
  Receive Date: 20210826
  Receipt Date: 20210917
  Transmission Date: 20211014
  Serious: Yes (Other)
  Sender: FDA-Public Use
  Company Number: US-BEH-2021135211

PATIENT
  Age: 46 Year
  Sex: Female

DRUGS (2)
  1. HIZENTRA [Suspect]
     Active Substance: HUMAN IMMUNOGLOBULIN G
     Indication: IMMUNODEFICIENCY COMMON VARIABLE
     Dosage: 17 GRAM, QW
     Route: 058
     Dates: start: 20201103
  2. HIZENTRA [Suspect]
     Active Substance: HUMAN IMMUNOGLOBULIN G
     Dosage: 17 GRAM, QW
     Route: 058
     Dates: start: 202010

REACTIONS (5)
  - Abdominal distension [Unknown]
  - Therapy interrupted [Unknown]
  - No adverse event [Unknown]
  - Infection [Unknown]
  - Hysterectomy [Unknown]

NARRATIVE: CASE EVENT DATE: 202108
